FAERS Safety Report 8060309-X (Version None)
Quarter: 2012Q1

REPORT INFORMATION
  Report Type: 
  Country: None (occurrence: None)
  Receive Date: 20120120
  Receipt Date: 20120118
  Transmission Date: 20120608
  Serious: No
  Sender: FDA-Public Use
  Company Number: US-PFIZER INC-2012014779

PATIENT
  Sex: Male
  Weight: 74.83 kg

DRUGS (2)
  1. ZITHROMAX [Suspect]
     Indication: SINUSITIS
  2. ZITHROMAX [Suspect]
     Indication: NASOPHARYNGITIS
     Dosage: UNK
     Dates: start: 20090101, end: 20090101

REACTIONS (1)
  - ATRIAL FIBRILLATION [None]
